FAERS Safety Report 19431548 (Version 2)
Quarter: 2025Q2

REPORT INFORMATION
  Report Type: Spontaneous
  Country: US (occurrence: US)
  Receive Date: 20210618
  Receipt Date: 20250626
  Transmission Date: 20250717
  Serious: Yes (Hospitalization, Other)
  Sender: AUROBINDO
  Company Number: US-AUROBINDO-AUR-APL-2021-024918

PATIENT
  Age: 19 Year
  Sex: Male

DRUGS (2)
  1. IBUPROFEN [Suspect]
     Active Substance: IBUPROFEN
     Indication: Product used for unknown indication
     Route: 048
  2. IBUPROFEN [Suspect]
     Active Substance: IBUPROFEN
     Route: 065

REACTIONS (10)
  - Coma [Unknown]
  - Depressed level of consciousness [Unknown]
  - Polyuria [Unknown]
  - Metabolic acidosis [Unknown]
  - Overdose [Unknown]
  - Muscle twitching [Unknown]
  - Tachycardia [Recovering/Resolving]
  - Sinus tachycardia [Recovering/Resolving]
  - Mental status changes [Recovering/Resolving]
  - Electrocardiogram QT prolonged [Unknown]
